FAERS Safety Report 10521867 (Version 1)
Quarter: 2014Q4

REPORT INFORMATION
  Report Type: Spontaneous
  Country: US (occurrence: None)
  Receive Date: 20141003
  Receipt Date: 20141003
  Transmission Date: 20150528
  Serious: Yes (Other)
  Sender: FDA-Public Use
  Company Number: 1268365

PATIENT
  Age: 59 Year
  Sex: Male

DRUGS (6)
  1. ZOVIRAX (ACICLOVIR) [Concomitant]
     Active Substance: ACYCLOVIR
  2. CIALIS [Concomitant]
     Active Substance: TADALAFIL
  3. ACYCLOVIR (ACICLOVIR) (ACICLOVIR) [Concomitant]
     Active Substance: ACYCLOVIR
  4. LEXAPRO [Concomitant]
     Active Substance: ESCITALOPRAM OXALATE
  5. PEGASYS [Suspect]
     Active Substance: PEGINTERFERON ALFA-2A
     Indication: CHRONIC HEPATITIS C
     Dosage: (180 UG, 1 IN 1 WK), SUBCUTANEOUS
     Route: 058
     Dates: start: 20130626, end: 201308
  6. TIZANIDINE (TIZANIDINE HYDROCHLORIDE) [Concomitant]
     Active Substance: TIZANIDINE HYDROCHLORIDE

REACTIONS (1)
  - Drug ineffective [None]
